FAERS Safety Report 21757065 (Version 1)
Quarter: 2022Q4

REPORT INFORMATION
  Report Type: Spontaneous
  Country: US (occurrence: US)
  Receive Date: 20221220
  Receipt Date: 20221220
  Transmission Date: 20230113
  Serious: Yes (Death, Other)
  Sender: FDA-Public Use
  Company Number: US-GILEAD-2022-0610030

PATIENT
  Age: 75 Year
  Sex: Female
  Weight: 56.2 kg

DRUGS (4)
  1. YESCARTA [Suspect]
     Active Substance: AXICABTAGENE CILOLEUCEL
     Indication: Diffuse large B-cell lymphoma
     Route: 065
  2. TOCILIZUMAB [Concomitant]
     Active Substance: TOCILIZUMAB
  3. FLUDARABINE PHOSPHATE [Concomitant]
     Active Substance: FLUDARABINE PHOSPHATE
  4. CYCLOPHOSPHAMIDE [Concomitant]
     Active Substance: CYCLOPHOSPHAMIDE

REACTIONS (14)
  - Death [Fatal]
  - Bone marrow failure [Unknown]
  - Cerebral disorder [Unknown]
  - Skin exfoliation [Unknown]
  - Renal failure [Unknown]
  - Generalised oedema [Unknown]
  - Bradypnoea [Unknown]
  - Pancytopenia [Unknown]
  - Blister [Unknown]
  - Hypervolaemia [Unknown]
  - Cytokine release syndrome [Unknown]
  - Tachycardia [Unknown]
  - Hypertension [Unknown]
  - Neurotoxicity [Unknown]

NARRATIVE: CASE EVENT DATE: 20190425
